FAERS Safety Report 9881211 (Version 2)
Quarter: 2014Q1

REPORT INFORMATION
  Report Type: Report from Study
  Country: TH (occurrence: TH)
  Receive Date: 20140207
  Receipt Date: 20140212
  Transmission Date: 20141002
  Serious: Yes (Hospitalization)
  Sender: FDA-Public Use
  Company Number: TH-SA-2014SA012621

PATIENT
  Age: 65 Year
  Sex: Male

DRUGS (14)
  1. AFLIBERCEPT [Suspect]
     Indication: COLORECTAL CANCER METASTATIC
     Route: 041
     Dates: start: 20131118, end: 20131118
  2. AFLIBERCEPT [Suspect]
     Indication: COLORECTAL CANCER METASTATIC
     Route: 041
     Dates: start: 20140113, end: 20140113
  3. FLUOROURACIL [Suspect]
     Indication: COLORECTAL CANCER METASTATIC
     Route: 041
     Dates: start: 20131118
  4. FLUOROURACIL [Suspect]
     Indication: COLORECTAL CANCER METASTATIC
     Route: 040
     Dates: start: 20131118, end: 20131118
  5. FLUOROURACIL [Suspect]
     Indication: COLORECTAL CANCER METASTATIC
     Route: 040
     Dates: start: 20140113, end: 20140113
  6. FLUOROURACIL [Suspect]
     Indication: COLORECTAL CANCER METASTATIC
     Route: 041
     Dates: start: 20140113
  7. IRINOTECAN [Suspect]
     Indication: COLORECTAL CANCER METASTATIC
     Route: 041
     Dates: start: 20131118, end: 20131118
  8. IRINOTECAN [Suspect]
     Indication: COLORECTAL CANCER METASTATIC
     Route: 041
     Dates: start: 20140113, end: 20140113
  9. LEUCOVORIN [Suspect]
     Indication: COLORECTAL CANCER METASTATIC
     Route: 041
     Dates: start: 20131118, end: 20131118
  10. LEUCOVORIN [Suspect]
     Indication: COLORECTAL CANCER METASTATIC
     Route: 041
     Dates: start: 20140113, end: 20140113
  11. CALCIUM CHANNEL BLOCKERS [Concomitant]
     Dates: start: 20030101
  12. LOSARTAN [Concomitant]
     Route: 048
     Dates: start: 20030101
  13. NORTRIPTYLINE [Concomitant]
     Indication: PROPHYLAXIS
     Route: 048
     Dates: start: 20140107
  14. DEANXIT [Concomitant]
     Route: 048
     Dates: start: 20140107

REACTIONS (1)
  - Cardiac failure congestive [Recovered/Resolved]
